FAERS Safety Report 5053544-6 (Version None)
Quarter: 2006Q3

REPORT INFORMATION
  Report Type: 
  Country: None (occurrence: None)
  Receive Date: 20060712
  Receipt Date: 20060626
  Transmission Date: 20061208
  Serious: Yes (Death, Hospitalization)
  Sender: FDA-Public Use
  Company Number: CO200606002969

PATIENT
  Age: 77 Year
  Sex: Female
  Weight: 65 kg

DRUGS (12)
  1. FORTEO [Suspect]
     Indication: OSTEOPOROSIS
     Dosage: 20 UG DAILY (1/D) SUBCUTANEOUS
     Route: 058
     Dates: start: 20060322, end: 20060423
  2. FORTEO PEN(FORTEO PEN) [Concomitant]
  3. DRAMAMINE [Concomitant]
  4. NIMOTOP [Concomitant]
  5. METOPROLOL (METOPROLOL) [Concomitant]
  6. FUROSEMIDE [Concomitant]
  7. CALCIUM (CALCIUM) [Concomitant]
  8. DIPYRONE (METAMIZOLE SODIUM) [Concomitant]
  9. CALCITRIOL [Concomitant]
  10. TRAMADOL HCL [Concomitant]
  11. CIPROFLOXACIN [Concomitant]
  12. CLONAZEPAM [Concomitant]

REACTIONS (10)
  - CONVULSION [None]
  - INFECTION [None]
  - INTESTINAL OBSTRUCTION [None]
  - LUMBAR VERTEBRAL FRACTURE [None]
  - METABOLIC ACIDOSIS [None]
  - PRESCRIBED OVERDOSE [None]
  - PROCEDURAL COMPLICATION [None]
  - RENAL FAILURE [None]
  - SEPSIS [None]
  - URINARY TRACT INFECTION [None]
